FAERS Safety Report 15619316 (Version 1)
Quarter: 2018Q4

REPORT INFORMATION
  Report Type: Spontaneous
  Country: US (occurrence: US)
  Receive Date: 20181115
  Receipt Date: 20181115
  Transmission Date: 20190205
  Serious: No
  Sender: FDA-Public Use
  Company Number: US-AUROBINDO-AUR-APL-2018-051924

PATIENT
  Sex: Female
  Weight: 80.7 kg

DRUGS (1)
  1. OLMESARTAN MEDOXOMIL 20 MG TABLETS [Suspect]
     Active Substance: OLMESARTAN MEDOXOMIL
     Indication: HYPERTENSION
     Dosage: 1 TABLET PER DAY
     Dates: start: 20180919

REACTIONS (4)
  - Nausea [Recovered/Resolved]
  - Ear infection [Recovered/Resolved]
  - Vomiting [Recovered/Resolved]
  - Headache [Recovered/Resolved]
